FAERS Safety Report 14725896 (Version 1)
Quarter: 2018Q2

REPORT INFORMATION
  Report Type: Spontaneous
  Country: SE (occurrence: SE)
  Receive Date: 20180406
  Receipt Date: 20180406
  Transmission Date: 20180711
  Serious: Yes (Other)
  Sender: FDA-Public Use
  Company Number: SE-AUROBINDO-AUR-APL-2018-018332

PATIENT
  Age: 86 Year
  Sex: Male

DRUGS (6)
  1. CIPROFLOXACIN. [Interacting]
     Active Substance: CIPROFLOXACIN
     Indication: RESPIRATORY TRACT INFECTION BACTERIAL
     Route: 048
  2. ACETYLSALICYLIC ACID [Interacting]
     Active Substance: ASPIRIN
     Indication: CARDIOMYOPATHY
     Dosage: (LONG TERM)
     Route: 048
  3. ENALAPRIL [Interacting]
     Active Substance: ENALAPRIL
     Indication: CARDIOMYOPATHY
     Dosage: (LONG TERM)
     Route: 048
  4. PARACETAMOL [Concomitant]
     Active Substance: ACETAMINOPHEN
     Indication: PRODUCT USED FOR UNKNOWN INDICATION
     Dosage: ()
     Route: 065
  5. FUROSEMIDE. [Concomitant]
     Active Substance: FUROSEMIDE
     Indication: PRODUCT USED FOR UNKNOWN INDICATION
     Dosage: ()
     Route: 065
  6. AMOXICILLIN+CLAVULANIC ACID [Suspect]
     Active Substance: AMOXICILLIN\CLAVULANIC ACID
     Indication: RESPIRATORY TRACT INFECTION BACTERIAL
     Dosage: ()
     Route: 048

REACTIONS (2)
  - Acute kidney injury [Unknown]
  - Drug interaction [Unknown]
